FAERS Safety Report 24093130 (Version 1)
Quarter: 2024Q3

REPORT INFORMATION
  Report Type: Spontaneous
  Country: FR (occurrence: None)
  Receive Date: 20240715
  Receipt Date: 20240715
  Transmission Date: 20241016
  Serious: Yes (Other)
  Sender: ASTRAZENECA
  Company Number: 2024A160699

PATIENT
  Sex: Male

DRUGS (1)
  1. DURVALUMAB [Suspect]
     Active Substance: DURVALUMAB
     Indication: Non-small cell lung cancer
     Dates: start: 20210518, end: 20211025

REACTIONS (4)
  - Malignant neoplasm progression [Unknown]
  - Haematotoxicity [Unknown]
  - Oesophagitis [Unknown]
  - Off label use [Unknown]
